FAERS Safety Report 20776827 (Version 1)
Quarter: 2022Q2

REPORT INFORMATION
  Report Type: Spontaneous
  Country: NL (occurrence: NL)
  Receive Date: 20220502
  Receipt Date: 20220502
  Transmission Date: 20220721
  Serious: Yes (Death)
  Sender: FDA-Public Use
  Company Number: None

PATIENT
  Age: 72 Year
  Sex: Male
  Weight: 70 kg

DRUGS (6)
  1. BEVACIZUMAB [Suspect]
     Active Substance: BEVACIZUMAB
     Indication: Colon cancer metastatic
     Dosage: 523 MG, EVERY 3 WEEKS
     Dates: start: 20220211, end: 20220326
  2. CAPECITABINE [Suspect]
     Active Substance: CAPECITABINE
     Indication: Colon cancer metastatic
     Dosage: 1750 MG, 2X/DAY
     Dates: start: 20220211, end: 20220325
  3. OXALIPLATIN [Suspect]
     Active Substance: OXALIPLATIN
     Indication: Colon cancer metastatic
     Dosage: 245 MG, EVERY 3 WEEKS
     Dates: start: 20220211, end: 20220325
  4. METOCLOPRAMIDE [Concomitant]
     Active Substance: METOCLOPRAMIDE
     Dosage: UNK
  5. GRANISETRON [Concomitant]
     Active Substance: GRANISETRON
     Dosage: UNK
  6. DEXAMETHASONE [Concomitant]
     Active Substance: DEXAMETHASONE
     Dosage: UNK

REACTIONS (2)
  - Aortitis [Fatal]
  - Aortic dissection [Fatal]

NARRATIVE: CASE EVENT DATE: 20220407
